FAERS Safety Report 23932339 (Version 1)
Quarter: 2024Q2

REPORT INFORMATION
  Report Type: Spontaneous
  Country: CN (occurrence: CN)
  Receive Date: 20240603
  Receipt Date: 20240603
  Transmission Date: 20240716
  Serious: Yes (Other)
  Sender: FDA-Public Use
  Company Number: CN-PFIZER INC-PV202400071481

PATIENT
  Age: 60 Year
  Sex: Male

DRUGS (4)
  1. CYTARABINE [Suspect]
     Active Substance: CYTARABINE
     Indication: Chemotherapy
     Dosage: 50 UG, 1X/DAY
     Route: 037
     Dates: start: 20240420, end: 20240420
  2. CYTARABINE [Suspect]
     Active Substance: CYTARABINE
     Indication: Neoplasm malignant
  3. CYTARABINE [Suspect]
     Active Substance: CYTARABINE
     Indication: Acute promyelocytic leukaemia
  4. DAUNORUBICIN [Concomitant]
     Active Substance: DAUNORUBICIN
     Indication: Acute promyelocytic leukaemia
     Dosage: 60 MG D1-3
     Dates: start: 20240420

REACTIONS (1)
  - Myelosuppression [Recovering/Resolving]

NARRATIVE: CASE EVENT DATE: 20240504
